FAERS Safety Report 24771309 (Version 1)
Quarter: 2024Q4

REPORT INFORMATION
  Report Type: Spontaneous
  Country: US (occurrence: US)
  Receive Date: 20241224
  Receipt Date: 20241224
  Transmission Date: 20250115
  Serious: No
  Sender: IPSEN BIOPHARMACEUTICALS, INC.
  Company Number: US-EXELIXIS-CABO-2024-02774

PATIENT
  Sex: Male

DRUGS (1)
  1. SOHONOS [Suspect]
     Active Substance: PALOVAROTENE
     Indication: Fibrodysplasia ossificans progressiva
     Dosage: 1.5 MG CAPSULE AND THE 2.5 MG CAPSULE ARE TAKEN TOGETHER FOR A TOTAL DAILY DOSE OF 4 MG
     Route: 048
     Dates: start: 202311

REACTIONS (3)
  - Rash [Unknown]
  - Pruritus [Unknown]
  - Product dose omission issue [Unknown]
